FAERS Safety Report 5536559-0 (Version None)
Quarter: 2007Q4

REPORT INFORMATION
  Report Type: 
  Country: None (occurrence: None)
  Receive Date: 20071204
  Receipt Date: 20071119
  Transmission Date: 20080405
  Serious: Yes (Other)
  Sender: FDA-Public Use
  Company Number: 2007S1012074

PATIENT
  Sex: Female
  Weight: 2.23 kg

DRUGS (4)
  1. BUDESONIDE [Suspect]
     Indication: ASTHMA
     Dosage: 1 DF; TWICE A DAY; TRANSPLACENTAL
     Route: 064
     Dates: start: 20051001
  2. FLUOXETINE [Suspect]
     Dosage: 10 MG; TRANSPLACENTAL
     Route: 064
  3. SALBUTAMOL (SALBUTAMOL) [Suspect]
     Dosage: TRANSPLACENTAL
     Route: 064
  4. FORMOTEROL (FORMOTEROL) [Suspect]
     Dosage: 1 DF; TWICE A DAY; TRANSPLACENTAL
     Route: 064
     Dates: start: 20071001

REACTIONS (1)
  - SEPSIS [None]
